FAERS Safety Report 12230693 (Version 1)
Quarter: 2016Q1

REPORT INFORMATION
  Report Type: Spontaneous
  Country: US (occurrence: None)
  Receive Date: 20160331
  Receipt Date: 20160331
  Transmission Date: 20160526
  Serious: No
  Sender: FDA-Public Use
  Company Number: None

PATIENT
  Age: 21 Year
  Sex: Female

DRUGS (1)
  1. PROGESTERONE, 100MG WATSON [Suspect]
     Active Substance: PROGESTERONE
     Route: 048
     Dates: start: 20160330, end: 20160330

REACTIONS (3)
  - Feeling drunk [None]
  - Disorientation [None]
  - Mental impairment [None]

NARRATIVE: CASE EVENT DATE: 20160330
